FAERS Safety Report 12529978 (Version 4)
Quarter: 2016Q3

REPORT INFORMATION
  Report Type: Spontaneous
  Country: GB (occurrence: GB)
  Receive Date: 20160706
  Receipt Date: 20160805
  Transmission Date: 20161109
  Serious: Yes (Other)
  Sender: FDA-Public Use
  Company Number: GB-AMGEN-GBRSP2016077262

PATIENT
  Age: 69 Year
  Sex: Female

DRUGS (9)
  1. METOCLOPRAMIDE. [Suspect]
     Active Substance: METOCLOPRAMIDE
     Indication: PRODUCT USED FOR UNKNOWN INDICATION
     Dosage: UNK, 1/1 CYCLICAL
     Route: 065
  2. NEULASTA [Suspect]
     Active Substance: PEGFILGRASTIM
     Dosage: UNK UNK, 1/1 CYCLICAL
     Route: 058
  3. DEXAMETHASONE. [Suspect]
     Active Substance: DEXAMETHASONE
     Indication: PRODUCT USED FOR UNKNOWN INDICATION
     Dosage: 8 MG, 1/1 CYCLICAL
     Route: 042
  4. ONDANSETRAN [Suspect]
     Active Substance: ONDANSETRON HYDROCHLORIDE
     Indication: PRODUCT USED FOR UNKNOWN INDICATION
     Dosage: 8 MG, 1/1 CYCLICAL
     Route: 042
  5. FLUOROURACIL. [Suspect]
     Active Substance: FLUOROURACIL
     Indication: BREAST CANCER
     Dosage: 1008 MG, 1/1 CYCLICAL
     Route: 042
     Dates: start: 20160608
  6. EPIRUBICIN [Suspect]
     Active Substance: EPIRUBICIN
     Indication: BREAST CANCER
     Dosage: 126 MG, 1/1 CYCLICAL
     Route: 042
     Dates: start: 20160608
  7. CYCLOPHOSPHAMIDE. [Suspect]
     Active Substance: CYCLOPHOSPHAMIDE
     Indication: BREAST CANCER
     Dosage: 0.9 MG, UNK
     Route: 042
     Dates: start: 20160608
  8. EMEND [Suspect]
     Active Substance: APREPITANT
     Indication: PRODUCT USED FOR UNKNOWN INDICATION
     Dosage: 125 MG, 1/1 CYCLICAL
     Route: 048
  9. NEULASTA [Suspect]
     Active Substance: PEGFILGRASTIM
     Indication: BREAST CANCER
     Dosage: 6 MG, 1/1 CYCLICAL
     Route: 058

REACTIONS (26)
  - Odynophagia [Unknown]
  - Oropharyngeal pain [Unknown]
  - Lower respiratory tract infection [Unknown]
  - Feeling abnormal [Unknown]
  - Headache [Unknown]
  - Cough [Unknown]
  - Body temperature abnormal [Unknown]
  - Hypophagia [Unknown]
  - Fatigue [Unknown]
  - Glossodynia [Unknown]
  - Alopecia [Unknown]
  - Productive cough [Unknown]
  - Vomiting [Unknown]
  - Oral pain [Unknown]
  - Eating disorder [Unknown]
  - Condition aggravated [Unknown]
  - Nausea [Unknown]
  - Malaise [Unknown]
  - Lethargy [Unknown]
  - Diarrhoea [Unknown]
  - Pharyngeal erythema [Unknown]
  - Sputum discoloured [Unknown]
  - Dry mouth [Unknown]
  - Dyspnoea [Unknown]
  - Ear pain [Unknown]
  - Intercepted drug administration error [Unknown]

NARRATIVE: CASE EVENT DATE: 201606
